FAERS Safety Report 5274133-4 (Version None)
Quarter: 2007Q1

REPORT INFORMATION
  Report Type: 
  Country: None (occurrence: None)
  Receive Date: 20070323
  Receipt Date: 20070314
  Transmission Date: 20070707
  Serious: Yes (Death, Hospitalization)
  Sender: FDA-Public Use
  Company Number: US-ABBOTT-07P-163-0355405-00

PATIENT
  Sex: Female

DRUGS (4)
  1. HUMIRA [Suspect]
     Indication: POLYMYALGIA RHEUMATICA
     Route: 058
     Dates: start: 20030101, end: 20060720
  2. INSULIN [Concomitant]
     Indication: DIABETES MELLITUS
  3. CLARITHROMYCIN [Concomitant]
     Indication: MYCOBACTERIUM FORTUITUM INFECTION
  4. BACTRIM [Concomitant]
     Indication: MYCOBACTERIUM FORTUITUM INFECTION

REACTIONS (6)
  - CARDIAC FAILURE CONGESTIVE [None]
  - IMPAIRED HEALING [None]
  - MUSCULAR WEAKNESS [None]
  - MYELOPATHY [None]
  - RESPIRATORY FAILURE [None]
  - WOUND INFECTION STAPHYLOCOCCAL [None]
